FAERS Safety Report 10222092 (Version 1)
Quarter: 2014Q2

REPORT INFORMATION
  Report Type: Spontaneous
  Country: JP (occurrence: JP)
  Receive Date: 20140606
  Receipt Date: 20140606
  Transmission Date: 20141212
  Serious: No
  Sender: FDA-Public Use
  Company Number: JP-BIOMARINAP-JP-2014-102888

PATIENT
  Age: 11 Year
  Sex: Male

DRUGS (4)
  1. NAGLAZYME [Suspect]
     Indication: MUCOPOLYSACCHARIDOSIS VI
     Dosage: 1 MG/KG, QW
     Route: 041
     Dates: start: 20061107
  2. NAGLAZYME [Suspect]
     Dosage: 25 MG, QW
     Route: 041
     Dates: start: 20080401, end: 20090929
  3. NAGLAZYME [Suspect]
     Dosage: 30 MG, QW
     Route: 041
     Dates: start: 20091006, end: 20120222
  4. NAGLAZYME [Suspect]
     Dosage: 35 MG, QW
     Route: 041
     Dates: start: 20120228

REACTIONS (1)
  - Rhinitis allergic [Not Recovered/Not Resolved]
